FAERS Safety Report 4543203-8 (Version None)
Quarter: 2004Q4

REPORT INFORMATION
  Report Type: 
  Country: None (occurrence: None)
  Receive Date: 20041230
  Receipt Date: 20041227
  Transmission Date: 20050328
  Serious: Yes (Death)
  Sender: FDA-Public Use
  Company Number: 04-11-1575

PATIENT
  Age: 16 Year
  Sex: Male
  Weight: 63.5036 kg

DRUGS (1)
  1. DOXYCYCLINE HYCLATE [Suspect]
     Indication: ACNE
     Dosage: 100MG QD, ORAL
     Route: 048
     Dates: start: 20040126, end: 20040820

REACTIONS (8)
  - ABNORMAL BEHAVIOUR [None]
  - ASTHENIA [None]
  - COMPLETED SUICIDE [None]
  - DEPRESSION [None]
  - EDUCATIONAL PROBLEM [None]
  - INSOMNIA [None]
  - JUDGEMENT IMPAIRED [None]
  - MOOD SWINGS [None]
